FAERS Safety Report 8287660-2 (Version None)
Quarter: 2012Q2

REPORT INFORMATION
  Report Type: 
  Country: None (occurrence: None)
  Receive Date: 20120416
  Receipt Date: 20120411
  Transmission Date: 20120825
  Serious: Yes (Hospitalization, Other)
  Sender: FDA-Public Use
  Company Number: PHEH2012US007922

PATIENT
  Sex: Male

DRUGS (1)
  1. GILENYA [Suspect]
     Dosage: UNK UKN, UNK
     Route: 048
     Dates: start: 20111001

REACTIONS (4)
  - HEART RATE DECREASED [None]
  - DEHYDRATION [None]
  - DIZZINESS [None]
  - LOSS OF CONSCIOUSNESS [None]
